FAERS Safety Report 23765962 (Version 5)
Quarter: 2024Q3

REPORT INFORMATION
  Report Type: Spontaneous
  Country: JP (occurrence: JP)
  Receive Date: 20240421
  Receipt Date: 20240725
  Transmission Date: 20241016
  Serious: Yes (Hospitalization)
  Sender: SANOFI AVENTIS
  Company Number: JP-SAKK-02018254

PATIENT
  Age: 77 Year
  Sex: Male
  Weight: 45.3 kg

DRUGS (1)
  1. PLAVIX [Suspect]
     Active Substance: CLOPIDOGREL BISULFATE
     Indication: Carotid artery insufficiency
     Dosage: 1 DF (75 MG), QD
     Route: 048
     Dates: start: 20220419, end: 20240403

REACTIONS (9)
  - Confusional state [Recovered/Resolved]
  - Irritability [Recovered/Resolved]
  - Insomnia [Recovered/Resolved]
  - Feeling hot [Recovered/Resolved]
  - Decreased appetite [Recovered/Resolved]
  - Abnormal behaviour [Recovered/Resolved]
  - Abdominal discomfort [Recovered/Resolved]
  - Anxiety [Recovered/Resolved]
  - Constipation [Recovered/Resolved]

NARRATIVE: CASE EVENT DATE: 20240201
